FAERS Safety Report 8605639-5 (Version None)
Quarter: 2012Q3

REPORT INFORMATION
  Report Type: 
  Country: None (occurrence: None)
  Receive Date: 20120820
  Receipt Date: 20120816
  Transmission Date: 20120928
  Serious: No
  Sender: FDA-Public Use
  Company Number: US-TEVA-342478USA

PATIENT
  Sex: Female

DRUGS (11)
  1. FLEXERIL [Concomitant]
  2. VALIUM [Concomitant]
  3. WELLBUTRIN [Concomitant]
  4. ACYCLOVIR [Concomitant]
  5. ULTRAM [Concomitant]
  6. NASONEX [Concomitant]
  7. NORCO [Concomitant]
  8. COPAXONE [Suspect]
     Indication: MULTIPLE SCLEROSIS
     Route: 058
  9. HYDROCHLOROTHIAZIDE [Concomitant]
  10. PROZAC [Concomitant]
  11. ZANTAC [Concomitant]

REACTIONS (1)
  - LYMPHADENOPATHY [None]
